FAERS Safety Report 9012245 (Version 2)
Quarter: 2013Q1

REPORT INFORMATION
  Report Type: Spontaneous
  Country: GB (occurrence: GB)
  Receive Date: 20130114
  Receipt Date: 20130306
  Transmission Date: 20140127
  Serious: Yes (Other)
  Sender: FDA-Public Use
  Company Number: PHFR2012GB006581

PATIENT
  Sex: Male

DRUGS (2)
  1. CLOZARIL [Suspect]
     Indication: SCHIZOPHRENIA
     Dosage: 100 MG, BID
     Route: 048
     Dates: start: 20111006
  2. OXYBUTYNIN [Concomitant]

REACTIONS (3)
  - Urinary tract infection [Unknown]
  - Pollakiuria [Recovered/Resolved]
  - Urinary incontinence [Unknown]
